FAERS Safety Report 8833923 (Version 1)
Quarter: 2012Q4

REPORT INFORMATION
  Report Type: 
  Country: CA (occurrence: CA)
  Receive Date: 20121010
  Receipt Date: 20121010
  Transmission Date: 20130627
  Serious: Yes (Other)
  Sender: FDA-Public Use
  Company Number: CA-B.I. PHARMACEUTICALS,INC./RIDGEFIELD-2012-CN-02059CN

PATIENT
  Sex: Male

DRUGS (1)
  1. PRADAX [Suspect]
     Dosage: 300 mg

REACTIONS (2)
  - Polyp [Unknown]
  - Gastrointestinal haemorrhage [Not Recovered/Not Resolved]
